FAERS Safety Report 6656209-X (Version None)
Quarter: 2010Q1

REPORT INFORMATION
  Report Type: 
  Country: None (occurrence: None)
  Receive Date: 20100326
  Receipt Date: 20100326
  Transmission Date: 20100710
  Serious: Yes (Life-Threatening, Hospitalization)
  Sender: FDA-Public Use
  Company Number: None

PATIENT

DRUGS (1)
  1. MIRALAX [Suspect]
     Indication: CONSTIPATION
     Dosage: 2 CAPFULS 3 TIMES A DAY; PRN IN 2005
     Dates: start: 20060101, end: 20100201

REACTIONS (37)
  - ANORECTAL DISORDER [None]
  - ANXIETY [None]
  - AORTIC ARTERIOSCLEROSIS [None]
  - ATELECTASIS [None]
  - BARRETT'S OESOPHAGUS [None]
  - BILIRUBIN URINE [None]
  - BLOOD PRESSURE INADEQUATELY CONTROLLED [None]
  - CARDIAC DISORDER [None]
  - CHOLELITHIASIS [None]
  - CONSTIPATION [None]
  - DEHYDRATION [None]
  - DEPRESSION [None]
  - DERMATITIS [None]
  - DIZZINESS [None]
  - ECZEMA [None]
  - ELECTROCARDIOGRAM T WAVE ABNORMAL [None]
  - FATIGUE [None]
  - FLUID INTAKE REDUCED [None]
  - GENERAL PHYSICAL HEALTH DETERIORATION [None]
  - HEPATIC FUNCTION ABNORMAL [None]
  - HYPOPHAGIA [None]
  - INFLUENZA LIKE ILLNESS [None]
  - INSOMNIA [None]
  - LUNG DISORDER [None]
  - LUNG NEOPLASM [None]
  - MENTAL STATUS CHANGES [None]
  - MESENTERIC VASCULAR INSUFFICIENCY [None]
  - PYREXIA [None]
  - RENAL ARTERY ARTERIOSCLEROSIS [None]
  - RENAL CYST [None]
  - RENAL FAILURE [None]
  - RENAL PAIN [None]
  - THYROID ADENOMA [None]
  - TREMOR [None]
  - URINARY TRACT INFECTION [None]
  - VISION BLURRED [None]
  - WEIGHT DECREASED [None]
